FAERS Safety Report 7698844-6 (Version None)
Quarter: 2011Q3

REPORT INFORMATION
  Report Type: 
  Country: None (occurrence: None)
  Receive Date: 20110819
  Receipt Date: 20080229
  Transmission Date: 20111222
  Serious: No
  Sender: FDA-Public Use
  Company Number: CA-PFIZER INC-2008016350

PATIENT
  Sex: Female

DRUGS (1)
  1. VARENICLINE TARTRATE [Suspect]
     Route: 048
     Dates: start: 20080201

REACTIONS (2)
  - NAUSEA [None]
  - VOMITING [None]
